FAERS Safety Report 6832378-3 (Version None)
Quarter: 2010Q3

REPORT INFORMATION
  Report Type: 
  Country: None (occurrence: None)
  Receive Date: 20100712
  Receipt Date: 20100629
  Transmission Date: 20110219
  Serious: No
  Sender: FDA-Public Use
  Company Number: US-ELI_LILLY_AND_COMPANY-US201004006693

PATIENT
  Sex: Female
  Weight: 65.76 kg

DRUGS (3)
  1. FORTEO [Suspect]
     Indication: OSTEOPOROSIS
     Dosage: 20 UG, DAILY (1/D)
     Dates: start: 20100203
  2. VICODIN [Concomitant]
     Indication: PAIN
     Dosage: 1 D/F, AS NEEDED
  3. CALCIUM WITH VITAMIN D [Concomitant]

REACTIONS (2)
  - FALL [None]
  - WRIST FRACTURE [None]
